FAERS Safety Report 18041811 (Version 1)
Quarter: 2020Q3

REPORT INFORMATION
  Report Type: Spontaneous
  Country: GB (occurrence: GB)
  Receive Date: 20200720
  Receipt Date: 20200720
  Transmission Date: 20201103
  Serious: Yes (Other)
  Sender: FDA-Public Use
  Company Number: GB-TEVA-2020-GB-1800865

PATIENT
  Age: 63 Year
  Sex: Male

DRUGS (2)
  1. DIAZEPAM. [Suspect]
     Active Substance: DIAZEPAM
     Indication: FIBROMYALGIA
     Dosage: 5 MG,UP TO A MAXIMUM OF 14 TABLETS PER 28 DAYS FOR NERVE PAIN.
     Route: 048
     Dates: start: 20200407
  2. OXYCODONE [Concomitant]
     Active Substance: OXYCODONE
     Indication: SPINAL PAIN

REACTIONS (4)
  - Drug ineffective [Unknown]
  - Product substitution issue [Unknown]
  - Suspected counterfeit product [Unknown]
  - Neuralgia [Unknown]

NARRATIVE: CASE EVENT DATE: 202003
